FAERS Safety Report 9189571 (Version 1)
Quarter: 2013Q1

REPORT INFORMATION
  Report Type: Spontaneous
  Country: US (occurrence: US)
  Receive Date: 20130326
  Receipt Date: 20130326
  Transmission Date: 20140127
  Serious: Yes (Hospitalization, Other)
  Sender: FDA-Public Use
  Company Number: US-SANOFI-AVENTIS-2013SA029965

PATIENT
  Age: 72 Year
  Sex: Female

DRUGS (6)
  1. PLAVIX [Suspect]
     Indication: CEREBROVASCULAR ACCIDENT
     Dates: start: 200808
  2. NEBIVOLOL [Concomitant]
  3. PRAVASTATIN [Concomitant]
  4. HYDROCHLOROTHIAZIDE [Concomitant]
  5. AMBIEN [Concomitant]
  6. PRILOSEC [Concomitant]

REACTIONS (4)
  - Parathyroid disorder [Unknown]
  - Insomnia [Unknown]
  - Ulcer haemorrhage [Not Recovered/Not Resolved]
  - Cluster headache [Unknown]
